FAERS Safety Report 7365524-6 (Version None)
Quarter: 2011Q1

REPORT INFORMATION
  Report Type: 
  Country: None (occurrence: None)
  Receive Date: 20110322
  Receipt Date: 20100930
  Transmission Date: 20110831
  Serious: Yes (Hospitalization)
  Sender: FDA-Public Use
  Company Number: US-BAYER-201036663NA

PATIENT
  Sex: Female
  Weight: 63.492 kg

DRUGS (6)
  1. PROZAC [Concomitant]
     Indication: PREMENSTRUAL SYNDROME
     Dosage: UNK UNK, PRN
     Route: 048
  2. ADVIL LIQUI-GELS [Concomitant]
     Dosage: UNK UNK, PRN
  3. YASMIN [Suspect]
     Dosage: UNK
     Route: 048
     Dates: start: 20020901, end: 20090103
  4. ACETAMINOPHEN W/ CODEINE [Concomitant]
  5. PRENATAL VITAMINS [Concomitant]
  6. STOOL SOFTENER [Concomitant]

REACTIONS (4)
  - CHEST PAIN [None]
  - PULMONARY EMBOLISM [None]
  - PARAESTHESIA [None]
  - DYSPNOEA [None]
